FAERS Safety Report 8252818-5 (Version None)
Quarter: 2012Q2

REPORT INFORMATION
  Report Type: 
  Country: None (occurrence: None)
  Receive Date: 20120402
  Receipt Date: 20120224
  Transmission Date: 20120825
  Serious: No
  Sender: FDA-Public Use
  Company Number: US-ABBOTT-12P-163-0908989-00

PATIENT
  Sex: Male
  Weight: 127.12 kg

DRUGS (9)
  1. HYDROCHLOROTHIAZIDE [Concomitant]
     Indication: FLUID RETENTION
  2. HYZAAR [Concomitant]
     Indication: HYPERTENSION
  3. COREG [Concomitant]
     Indication: FLUID RETENTION
  4. PAXIL [Concomitant]
     Indication: SLEEP DISORDER THERAPY
  5. ANDROGEL [Suspect]
     Dosage: 4 PUMPS DAILY
     Dates: start: 20110601, end: 20111101
  6. XANAX [Concomitant]
     Indication: PANIC ATTACK
  7. ANDROGEL [Suspect]
     Indication: BLOOD TESTOSTERONE DECREASED
     Dosage: 4 PUMPS DAY
     Dates: start: 20100101, end: 20110301
  8. ANDROGEL [Suspect]
     Indication: BLOOD TESTOSTERONE DECREASED
     Dosage: 4 PUMPS DAILY
     Dates: start: 20111201
  9. TESTOSTERONE [Concomitant]
     Indication: BLOOD TESTOSTERONE DECREASED
     Dates: start: 20110301, end: 20110601

REACTIONS (8)
  - MENTAL IMPAIRMENT [None]
  - LIBIDO DECREASED [None]
  - ERECTILE DYSFUNCTION [None]
  - CONFUSIONAL STATE [None]
  - MYALGIA [None]
  - MENTAL DISORDER [None]
  - FATIGUE [None]
  - BLOOD TESTOSTERONE DECREASED [None]
